FAERS Safety Report 22114255 (Version 1)
Quarter: 2023Q1

REPORT INFORMATION
  Report Type: Spontaneous
  Country: BR (occurrence: BR)
  Receive Date: 20230320
  Receipt Date: 20230320
  Transmission Date: 20230417
  Serious: Yes (Disabling, Other)
  Sender: FDA-Public Use
  Company Number: BR-CIPLA LTD.-2023BR01037

PATIENT

DRUGS (1)
  1. CETIRIZINE [Suspect]
     Active Substance: CETIRIZINE HYDROCHLORIDE
     Indication: Product used for unknown indication
     Dosage: UNK, TABLET
     Route: 065
     Dates: start: 202202

REACTIONS (12)
  - Disability [Unknown]
  - Dysphagia [Unknown]
  - Laryngeal oedema [Unknown]
  - Ocular discomfort [Unknown]
  - Asphyxia [Unknown]
  - Dyspnoea [Unknown]
  - Poor peripheral circulation [Unknown]
  - Limb discomfort [Unknown]
  - Swelling face [Unknown]
  - Eye swelling [Unknown]
  - Peripheral swelling [Unknown]
  - Therapeutic response unexpected [Unknown]

NARRATIVE: CASE EVENT DATE: 20220201
